FAERS Safety Report 19537470 (Version 1)
Quarter: 2021Q3

REPORT INFORMATION
  Report Type: Spontaneous
  Country: JP (occurrence: JP)
  Receive Date: 20210713
  Receipt Date: 20210713
  Transmission Date: 20211014
  Serious: Yes (Hospitalization)
  Sender: FDA-Public Use
  Company Number: JP-LUPIN PHARMACEUTICALS INC.-2021-11735

PATIENT
  Age: 32 Year
  Sex: Male

DRUGS (3)
  1. CALCIUM [Suspect]
     Active Substance: CALCIUM
     Indication: CALCINOSIS
     Dosage: 3000 MILLIGRAM, QD
     Route: 065
  2. LANTHANUM CARBONATE. [Suspect]
     Active Substance: LANTHANUM CARBONATE
     Indication: CALCINOSIS
     Dosage: 1500 MILLIGRAM, QD
     Route: 065
  3. CINACALCET. [Suspect]
     Active Substance: CINACALCET
     Indication: CALCINOSIS
     Dosage: 75 MILLIGRAM, QD
     Route: 065

REACTIONS (1)
  - Therapy non-responder [Unknown]
